FAERS Safety Report 7629959-6 (Version None)
Quarter: 2011Q3

REPORT INFORMATION
  Report Type: 
  Country: None (occurrence: None)
  Receive Date: 20110722
  Receipt Date: 20110713
  Transmission Date: 20111222
  Serious: Yes (Death, Hospitalization)
  Sender: FDA-Public Use
  Company Number: IT-BRISTOL-MYERS SQUIBB COMPANY-15901556

PATIENT
  Age: 62 Year
  Sex: Female

DRUGS (6)
  1. NICARDIPINE HCL [Concomitant]
     Dosage: MODIFIED RELEASE CAPS SINCE 2 YEARS
     Route: 048
  2. ARAVA [Concomitant]
     Dosage: 20MG FILM COATED TABS THERAPY:SINCE 3 YEARS
     Route: 048
  3. PREDNISONE [Concomitant]
     Dosage: DELTACORTENE 25MG TABS SINCE 3 YEARS
     Route: 048
  4. ORENCIA [Suspect]
     Indication: RHEUMATOID ARTHRITIS
     Route: 042
     Dates: start: 20091201, end: 20110628
  5. RABEPRAZOLE SODIUM [Concomitant]
     Dosage: TABS SINCE 3 YEARS
     Route: 048
  6. DIBASE [Concomitant]
     Dosage: DIBASE 1ML INJECTABLE SOLUTION FOR ORAL AND INTRAMUSCULAR USE

REACTIONS (3)
  - DIARRHOEA [None]
  - VOMITING [None]
  - HYPOTENSION [None]
